FAERS Safety Report 8436962-5 (Version None)
Quarter: 2012Q2

REPORT INFORMATION
  Report Type: 
  Country: None (occurrence: None)
  Receive Date: 20120614
  Receipt Date: 20120608
  Transmission Date: 20120825
  Serious: Yes (Disabling)
  Sender: FDA-Public Use
  Company Number: US-PFIZER INC-2012092650

PATIENT
  Sex: Female

DRUGS (6)
  1. EFFEXOR [Suspect]
     Indication: PANIC ATTACK
  2. EFFEXOR XR [Suspect]
     Indication: DEPRESSION
  3. EFFEXOR [Suspect]
     Indication: STRESS
     Dosage: 75 MG, EVERY MORNING
     Route: 048
  4. EFFEXOR XR [Suspect]
     Indication: STRESS
     Dosage: 150 MG, EVERY MORNING
     Route: 048
     Dates: start: 20070101
  5. EFFEXOR XR [Suspect]
     Indication: PANIC ATTACK
  6. EFFEXOR [Suspect]
     Indication: DEPRESSION

REACTIONS (4)
  - PANIC DISORDER [None]
  - WRIST FRACTURE [None]
  - NERVOUSNESS [None]
  - SKELETAL INJURY [None]
